FAERS Safety Report 9432752 (Version 2)
Quarter: 2013Q4

REPORT INFORMATION
  Report Type: Spontaneous
  Country: US (occurrence: None)
  Receive Date: 20130729
  Receipt Date: 20131003
  Transmission Date: 20140711
  Serious: Yes (Hospitalization)
  Sender: FDA-Public Use
  Company Number: 2013MPI00434

PATIENT
  Age: 74 Year
  Sex: Male
  Weight: 100.5 kg

DRUGS (4)
  1. BRENTUXIMAB VEDOTIN (BRENTUXIMAB VEDOTIN) INJECTION [Suspect]
     Indication: HODGKIN^S DISEASE
     Dosage: 1.2MG/KG QCYCLE INTRAVENOUS
     Route: 042
     Dates: start: 20130612, end: 20130701
  2. DOXORUBICIN [Suspect]
     Indication: HODGKIN^S DISEASE
     Dosage: 25MG/M2 QCYCLE INTRAVENOUS
     Route: 042
     Dates: start: 20130612, end: 20130701
  3. VINBLASTINE [Suspect]
     Indication: HODGKIN^S DISEASE
     Dosage: 6MG/M2 QCYCLE INTRAVENOUS
     Route: 042
     Dates: start: 20130612, end: 20130701
  4. DACARBAZINE [Suspect]
     Indication: HODGKIN^S DISEASE
     Dosage: 375 MG/M2 INTRAVENOUS
     Route: 042
     Dates: start: 20130612, end: 20130701

REACTIONS (13)
  - Febrile neutropenia [None]
  - Hyponatraemia [None]
  - Depression [None]
  - Pancytopenia [None]
  - Fatigue [None]
  - Enteritis [None]
  - Colitis [None]
  - Atelectasis [None]
  - Pleural effusion [None]
  - Sepsis [None]
  - Syncope [None]
  - Cardiomegaly [None]
  - Blood glucose increased [None]
